FAERS Safety Report 9510542 (Version 3)
Quarter: 2013Q4

REPORT INFORMATION
  Report Type: Report from Study
  Country: AU (occurrence: AU)
  Receive Date: 20130909
  Receipt Date: 20131031
  Transmission Date: 20140711
  Serious: Yes (Hospitalization, Other)
  Sender: FDA-Public Use
  Company Number: PHHY2013AU098864

PATIENT
  Age: 45 Year
  Sex: Female

DRUGS (7)
  1. CLOZARIL [Suspect]
     Indication: SCHIZOPHRENIA
     Dosage: 450 MG, UNK
     Route: 048
     Dates: start: 20031027
  2. CLOZARIL [Suspect]
     Dosage: DOSE DECREASED
     Route: 048
  3. CLOZARIL [Suspect]
     Dosage: 300 MG, DAILY
     Dates: start: 20130406
  4. CLOZARIL [Suspect]
     Dosage: DOSE INCREASED TO 300 MG, UNK
     Route: 048
     Dates: start: 20130906
  5. DIAZEPAM [Concomitant]
     Indication: ANXIETY
     Dosage: 15 MG, PER DAY
     Route: 048
  6. DIAZEPAM [Concomitant]
     Indication: INSOMNIA
     Dosage: 5 TO 10 MG , BID, PRN
     Route: 048
  7. CHOLECALCIFEROL [Concomitant]
     Indication: VITAMIN D DECREASED
     Dosage: 25 MG, PER DAY
     Route: 048

REACTIONS (20)
  - Psychosomatic disease [Not Recovered/Not Resolved]
  - Urinary tract infection [Recovered/Resolved]
  - Escherichia infection [Unknown]
  - Streptococcal infection [Unknown]
  - Schizophrenia [Recovering/Resolving]
  - Suicidal ideation [Recovering/Resolving]
  - Delusion [Unknown]
  - Thinking abnormal [Unknown]
  - Hallucination [Recovering/Resolving]
  - Paranoia [Recovering/Resolving]
  - Gastrooesophageal reflux disease [Not Recovered/Not Resolved]
  - Abdominal discomfort [Not Recovered/Not Resolved]
  - Abdominal pain [Not Recovered/Not Resolved]
  - Constipation [Recovering/Resolving]
  - Eating disorder [Unknown]
  - C-reactive protein increased [Recovered/Resolved]
  - Antipsychotic drug level increased [Not Recovered/Not Resolved]
  - Respiratory tract infection [Unknown]
  - White blood cell count increased [Unknown]
  - Neutrophil count increased [Unknown]
